FAERS Safety Report 4389302-5 (Version None)
Quarter: 2004Q2

REPORT INFORMATION
  Report Type: 
  Country: None (occurrence: None)
  Receive Date: 20040628
  Receipt Date: 20040615
  Transmission Date: 20050107
  Serious: Yes (Hospitalization)
  Sender: FDA-Public Use
  Company Number: ZANA001313

PATIENT
  Sex: Male

DRUGS (7)
  1. ZANAFLEX [Suspect]
     Dosage: ORAL
     Route: 048
     Dates: start: 20040101
  2. EVOXAC [Concomitant]
  3. BENTYL (DICYCLOVERINE) [Concomitant]
  4. SYNTHROID [Concomitant]
  5. EXTEX PSE (GUAIFENESIN) [Concomitant]
  6. PREVACID [Concomitant]
  7. LIPITOR [Concomitant]

REACTIONS (7)
  - ABNORMAL DREAMS [None]
  - BLOOD PRESSURE ORTHOSTATIC DECREASED [None]
  - DEHYDRATION [None]
  - NASAL DRYNESS [None]
  - PULSE ABNORMAL [None]
  - RESPIRATION ABNORMAL [None]
  - TACHYCARDIA [None]
